FAERS Safety Report 25725249 (Version 1)
Quarter: 2025Q3

REPORT INFORMATION
  Report Type: Spontaneous
  Country: NZ (occurrence: NZ)
  Receive Date: 20250826
  Receipt Date: 20250826
  Transmission Date: 20251020
  Serious: Yes (Other)
  Sender: ROCHE
  Company Number: NZ-ROCHE-10000367085

PATIENT
  Age: 24 Year
  Sex: Female

DRUGS (1)
  1. OCRELIZUMAB [Suspect]
     Active Substance: OCRELIZUMAB
     Indication: Relapsing-remitting multiple sclerosis
     Route: 065
     Dates: start: 202001

REACTIONS (8)
  - Cardiac arrest [Recovering/Resolving]
  - Myocarditis [Unknown]
  - Chest pain [Unknown]
  - Orthopnoea [Unknown]
  - Tachycardia [Unknown]
  - Cardiac failure [Recovering/Resolving]
  - Ejection fraction decreased [Unknown]
  - COVID-19 [Unknown]

NARRATIVE: CASE EVENT DATE: 20220901
